FAERS Safety Report 7716710-4 (Version None)
Quarter: 2011Q3

REPORT INFORMATION
  Report Type: 
  Country: None (occurrence: None)
  Receive Date: 20110829
  Receipt Date: 20110818
  Transmission Date: 20111222
  Serious: Yes (Death, Hospitalization)
  Sender: FDA-Public Use
  Company Number: BR-MEDIMMUNE-MEDI-0013493

PATIENT
  Sex: Male

DRUGS (1)
  1. SYNAGIS [Suspect]
     Indication: BRONCHOPULMONARY DYSPLASIA
     Dates: start: 20110405, end: 20110808

REACTIONS (9)
  - MULTI-ORGAN FAILURE [None]
  - BRONCHIOLITIS [None]
  - ERYTHEMA [None]
  - PYREXIA [None]
  - DEHYDRATION [None]
  - DYSPNOEA [None]
  - RENAL FAILURE [None]
  - FATIGUE [None]
  - DIARRHOEA [None]
